FAERS Safety Report 24000705 (Version 1)
Quarter: 2024Q2

REPORT INFORMATION
  Report Type: Spontaneous
  Country: US (occurrence: None)
  Receive Date: 20240621
  Receipt Date: 20240621
  Transmission Date: 20240716
  Serious: No
  Sender: FDA-Public Use
  Company Number: None

PATIENT
  Age: 73 Year
  Sex: Male
  Weight: 76 kg

DRUGS (1)
  1. ONDANSETRON [Suspect]
     Active Substance: ONDANSETRON
     Dosage: 4 MG ONCE INTRAVENOUS?
     Route: 042

REACTIONS (2)
  - Injection site urticaria [None]
  - Injection site swelling [None]

NARRATIVE: CASE EVENT DATE: 20240617
